FAERS Safety Report 4646189-0 (Version None)
Quarter: 2005Q2

REPORT INFORMATION
  Report Type: 
  Country: None (occurrence: None)
  Receive Date: 20050425
  Receipt Date: 20050419
  Transmission Date: 20051028
  Serious: Yes (Other)
  Sender: FDA-Public Use
  Company Number: HQWYE130019APR05

PATIENT
  Age: 66 Year
  Sex: Female

DRUGS (1)
  1. AMIODARONE HCL [Suspect]
     Indication: TACHYCARDIA PAROXYSMAL
     Dosage: 350 MG 1X PER 1 DAY INTRAVENOUS
     Route: 042
     Dates: start: 19941107, end: 19941107

REACTIONS (1)
  - HEPATIC NECROSIS [None]
